FAERS Safety Report 10050041 (Version 1)
Quarter: 2014Q1

REPORT INFORMATION
  Report Type: Spontaneous
  Country: US (occurrence: None)
  Receive Date: 20140331
  Receipt Date: 20140331
  Transmission Date: 20141002
  Serious: Yes (Other)
  Sender: FDA-Public Use
  Company Number: None

PATIENT
  Age: 57 Year
  Sex: Female

DRUGS (1)
  1. POLYMYXIN-B/TRIMETHOPRIM EYEDROP [Suspect]
     Indication: EYE INFECTION
     Dosage: ONE DROP IN EYE FOURT TIMES.DAY, FOURT TIMES DAILY, INTO THE EYE
     Dates: start: 20140326, end: 20140327

REACTIONS (3)
  - Ocular hyperaemia [None]
  - Swelling face [None]
  - Burning sensation [None]
